FAERS Safety Report 4994050-4 (Version None)
Quarter: 2006Q2

REPORT INFORMATION
  Report Type: 
  Country: None (occurrence: None)
  Receive Date: 20060503
  Receipt Date: 20060421
  Transmission Date: 20061013
  Serious: Yes (Death)
  Sender: FDA-Public Use
  Company Number: FR200604003707

PATIENT
  Age: 42 Year
  Sex: Male

DRUGS (4)
  1. ZYPREXA [Suspect]
     Indication: DEPRESSION
     Dosage: 10 MG, DAILY (1/D), ORAL
     Route: 048
  2. IMOVANE (ZOPICLONE) [Concomitant]
  3. XANAX [Concomitant]
  4. VENLAFAXINE HCL [Concomitant]

REACTIONS (3)
  - ARRHYTHMOGENIC RIGHT VENTRICULAR DYSPLASIA [None]
  - CYANOSIS [None]
  - INTENTIONAL OVERDOSE [None]
